FAERS Safety Report 25134868 (Version 2)
Quarter: 2025Q4

REPORT INFORMATION
  Report Type: Spontaneous
  Country: JP (occurrence: JP)
  Receive Date: 20250328
  Receipt Date: 20251027
  Transmission Date: 20260117
  Serious: Yes (Death)
  Sender: MERCK SHARP & DOHME LLC
  Company Number: JP-009507513-2269213

PATIENT
  Age: 80 Year
  Sex: Male

DRUGS (3)
  1. KEYTRUDA [Suspect]
     Active Substance: PEMBROLIZUMAB
     Indication: Oesophageal carcinoma
     Dosage: 200MG ONCE EVERY 3 WEEKS
     Route: 041
  2. CISPLATIN [Suspect]
     Active Substance: CISPLATIN
     Indication: Oesophageal carcinoma
     Dosage: 80MG/M2 ONCE EVERY 3 WEEKS
     Route: 041
  3. FLUOROURACIL [Suspect]
     Active Substance: FLUOROURACIL
     Indication: Oesophageal carcinoma
     Dosage: 800MG/M2 5 TIMES EVERY 3 WEEKS
     Route: 041

REACTIONS (1)
  - Drowning [Fatal]

NARRATIVE: CASE EVENT DATE: 20240301
